FAERS Safety Report 7401850-X (Version None)
Quarter: 2011Q1

REPORT INFORMATION
  Report Type: 
  Country: None (occurrence: None)
  Receive Date: 20110329
  Receipt Date: 20110315
  Transmission Date: 20110831
  Serious: Yes (Hospitalization)
  Sender: FDA-Public Use
  Company Number: DAV-AE-AMO-11-003

PATIENT
  Age: 54 Year
  Sex: Female

DRUGS (2)
  1. CLAVULANATE POTASSIUM [Concomitant]
  2. AMOXICILLIN [Suspect]

REACTIONS (7)
  - PHARYNGEAL OEDEMA [None]
  - URTICARIA [None]
  - PRURITUS [None]
  - DRUG HYPERSENSITIVITY [None]
  - LOSS OF CONSCIOUSNESS [None]
  - DYSPNOEA [None]
  - FACE OEDEMA [None]
